FAERS Safety Report 9639635 (Version 1)
Quarter: 2013Q4

REPORT INFORMATION
  Report Type: Spontaneous
  Country: US (occurrence: US)
  Receive Date: 20131023
  Receipt Date: 20131023
  Transmission Date: 20140711
  Serious: Yes (Hospitalization)
  Sender: FDA-Public Use
  Company Number: US-BIOGENIDEC-2013BI101003

PATIENT
  Age: 41 Year
  Sex: Female

DRUGS (9)
  1. AVONEX [Suspect]
     Indication: MULTIPLE SCLEROSIS
     Route: 030
  2. CLONAZEPAM [Concomitant]
     Route: 048
  3. ENALAPRIL [Concomitant]
     Route: 048
  4. NORCO [Concomitant]
     Route: 048
  5. COLACE [Concomitant]
  6. SENNA [Concomitant]
  7. PEPCID [Concomitant]
  8. TYLENOL [Concomitant]
     Route: 048
  9. BACLOFEN [Concomitant]
     Indication: MUSCLE SPASTICITY

REACTIONS (1)
  - Multiple sclerosis relapse [Recovered/Resolved]
